FAERS Safety Report 10661892 (Version 7)
Quarter: 2015Q1

REPORT INFORMATION
  Report Type: Spontaneous
  Country: US (occurrence: US)
  Receive Date: 20141218
  Receipt Date: 20150225
  Transmission Date: 20150720
  Serious: Yes (Death, Hospitalization, Other)
  Sender: FDA-Public Use
  Company Number: US-BAXTER-2014BAX073993

PATIENT
  Age: 82 Year
  Sex: Male

DRUGS (1)
  1. DIANEAL LOW CALCIUM PERITONEAL DIALYSIS SOLUTION WITH DEXTROSE [Suspect]
     Active Substance: CALCIUM CHLORIDE\DEXTROSE\MAGNESIUM CHLORIDE\SODIUM CHLORIDE\SODIUM LACTATE
     Indication: PERITONEAL DIALYSIS
     Route: 033

REACTIONS (9)
  - Clostridium difficile infection [Unknown]
  - Asthenia [Recovering/Resolving]
  - Blood glucose decreased [Recovering/Resolving]
  - Peritonitis [Recovering/Resolving]
  - Pain [Recovering/Resolving]
  - Chronic kidney disease [Fatal]
  - Failure to thrive [Not Recovered/Not Resolved]
  - Hypophagia [Recovering/Resolving]
  - Cardiac disorder [Unknown]

NARRATIVE: CASE EVENT DATE: 201412
